FAERS Safety Report 7266418-7 (Version None)
Quarter: 2011Q1

REPORT INFORMATION
  Report Type: 
  Country: None (occurrence: None)
  Receive Date: 20110131
  Receipt Date: 20110121
  Transmission Date: 20110831
  Serious: Yes (Hospitalization, Other)
  Sender: FDA-Public Use
  Company Number: JP-ASTRAZENECA-2010SE52011

PATIENT
  Age: 28 Year
  Sex: Male
  Weight: 70 kg

DRUGS (21)
  1. SEROQUEL [Suspect]
     Indication: SCHIZOPHRENIA
     Route: 048
     Dates: start: 20091221
  2. ABILIFY [Suspect]
     Indication: SCHIZOPHRENIA
     Route: 048
     Dates: start: 20071009, end: 20101019
  3. DEPAS [Suspect]
     Route: 048
     Dates: end: 20101019
  4. DEPAS [Suspect]
     Route: 048
  5. SEROQUEL [Suspect]
     Dosage: 2000 MG ONCE
     Route: 048
     Dates: start: 20101019, end: 20101019
  6. SEROQUEL [Suspect]
     Route: 048
  7. TASMOLIN [Suspect]
     Route: 048
     Dates: end: 20101019
  8. ABILIFY [Suspect]
     Indication: DEPRESSION
     Route: 048
     Dates: start: 20071009, end: 20101019
  9. SEROQUEL [Suspect]
     Route: 048
     Dates: end: 20101018
  10. TASMOLIN [Suspect]
     Route: 048
  11. SEROQUEL [Suspect]
     Indication: DEPRESSION
     Route: 048
     Dates: start: 20091221
  12. AKINETON [Concomitant]
     Route: 048
     Dates: end: 20101019
  13. SEROQUEL [Suspect]
     Route: 048
     Dates: end: 20101018
  14. SEROQUEL [Suspect]
     Dosage: 2000 MG ONCE
     Route: 048
     Dates: start: 20101019, end: 20101019
  15. ABILIFY [Suspect]
     Route: 048
  16. DEPAS [Suspect]
     Indication: ANXIETY
     Route: 048
     Dates: start: 20071009
  17. SEROQUEL [Suspect]
     Route: 048
  18. TASMOLIN [Suspect]
     Indication: PARKINSONISM
     Route: 048
     Dates: start: 20100105
  19. ABILIFY [Suspect]
     Route: 048
  20. BENZALIN [Suspect]
     Indication: SCHIZOPHRENIA
     Route: 048
     Dates: end: 20101019
  21. BENZALIN [Suspect]
     Indication: DEPRESSION
     Route: 048
     Dates: end: 20101019

REACTIONS (4)
  - PARKINSONISM [None]
  - SUICIDE ATTEMPT [None]
  - INTENTIONAL OVERDOSE [None]
  - COMA [None]
